FAERS Safety Report 20951193 (Version 12)
Quarter: 2022Q4

REPORT INFORMATION
  Report Type: Spontaneous
  Country: US (occurrence: US)
  Receive Date: 20220613
  Receipt Date: 20221123
  Transmission Date: 20230112
  Serious: No
  Sender: FDA-Public Use
  Company Number: US-PFIZER INC-202200824774

PATIENT
  Age: 68 Year
  Sex: Male

DRUGS (3)
  1. DEXTROSE [Suspect]
     Active Substance: DEXTROSE
     Dosage: 50 ML
  2. WATER [Suspect]
     Active Substance: WATER
     Dosage: 1000 ML
  3. KENALOG [Suspect]
     Active Substance: TRIAMCINOLONE ACETONIDE
     Dosage: 10 MG/ML

REACTIONS (3)
  - Periarthritis [Unknown]
  - Joint swelling [Unknown]
  - Drug hypersensitivity [Unknown]

NARRATIVE: CASE EVENT DATE: 20220201
